FAERS Safety Report 5614889-1 (Version None)
Quarter: 2008Q1

REPORT INFORMATION
  Report Type: 
  Country: None (occurrence: None)
  Receive Date: 20080131
  Receipt Date: 20080115
  Transmission Date: 20080703
  Serious: Yes (Other)
  Sender: FDA-Public Use
  Company Number: 2008VX000199

PATIENT
  Age: 76 Year
  Sex: Male
  Weight: 89 kg

DRUGS (11)
  1. EFUDEX [Suspect]
     Dosage: 1 DF;BID;TOP
     Route: 061
  2. LEUSTATIN [Suspect]
     Dosage: 12.5 MG;QD
  3. HUMULIN N [Concomitant]
  4. HUMULIN 70/30 [Concomitant]
  5. COMBIVENT [Concomitant]
  6. ADALAT CC [Concomitant]
  7. ASPIRIN [Concomitant]
  8. RANITIDINE [Concomitant]
  9. TRAZODONE HCL [Concomitant]
  10. CITALOPRAM HYDROBROMIDE [Concomitant]
  11. RAMIPRIL [Concomitant]

REACTIONS (7)
  - BLOOD BILIRUBIN INCREASED [None]
  - BLOOD CREATININE INCREASED [None]
  - CREATININE RENAL CLEARANCE DECREASED [None]
  - HAEMOGLOBIN DECREASED [None]
  - NEUTROPENIA [None]
  - THROMBOCYTOPENIA [None]
  - WHITE BLOOD CELL DISORDER [None]
